FAERS Safety Report 20351044 (Version 1)
Quarter: 2022Q1

REPORT INFORMATION
  Report Type: Spontaneous
  Country: US (occurrence: US)
  Receive Date: 20220119
  Receipt Date: 20220119
  Transmission Date: 20220423
  Serious: No
  Sender: FDA-Public Use
  Company Number: US-MYLANLABS-2021M1094276

PATIENT
  Sex: Female
  Weight: 68.04 kg

DRUGS (3)
  1. ESTRADIOL TRANSDERMAL SYSTEM [Suspect]
     Active Substance: ESTRADIOL
     Indication: Hormone replacement therapy
     Dosage: 0.375 MILLIGRAM, QD
     Route: 062
  2. LISINOPRIL [Concomitant]
     Active Substance: LISINOPRIL
     Indication: Hypertension
     Dosage: 20 MILLIGRAM
  3. LANSOPRAZOLE [Concomitant]
     Active Substance: LANSOPRAZOLE
     Indication: Gastrooesophageal reflux disease
     Dosage: 25 MILLIGRAM

REACTIONS (5)
  - Product adhesion issue [Unknown]
  - Application site pruritus [Unknown]
  - Application site erythema [Unknown]
  - Application site pain [Unknown]
  - Application site urticaria [Unknown]
